FAERS Safety Report 7663234 (Version 3)
Quarter: 2014Q2

REPORT INFORMATION
  Report Type: Spontaneous
  Country: ES (occurrence: ES)
  Receive Date: 20101110
  Receipt Date: 20140414
  Transmission Date: 20141212
  Serious: Yes (Life-Threatening, Hospitalization, Other)
  Sender: FDA-Public Use
  Company Number: ES-GILEAD-2010-0033198

PATIENT
  Age: 78 Year
  Sex: Female

DRUGS (14)
  1. RANEXA [Suspect]
     Indication: MYOCARDIAL ISCHAEMIA
     Dosage: 500 MG, BID
     Route: 048
     Dates: start: 20100610, end: 20100613
  2. RANEXA [Interacting]
     Dosage: UNK
  3. AMIODARONE [Interacting]
     Indication: ATRIAL FIBRILLATION
     Dosage: 200 MG, QD
     Route: 048
     Dates: start: 201001
  4. AMIODARONE [Interacting]
     Indication: VENTRICULAR TACHYCARDIA
     Dosage: UNK
     Route: 042
  5. SIMVASTATINE [Concomitant]
     Indication: DYSLIPIDAEMIA
     Dosage: 20 MG, QD
     Route: 048
  6. FUROSEMIDE [Concomitant]
     Indication: HYPERTENSION
     Dosage: 40 MG, QD
  7. ADIRO [Concomitant]
     Indication: MYOCARDIAL ISCHAEMIA
     Dosage: 100 MG, QD
     Route: 048
     Dates: end: 20100613
  8. SINTROM [Concomitant]
     Indication: ATRIAL FIBRILLATION
     Route: 048
  9. TOPAMAX [Concomitant]
     Indication: ESSENTIAL TREMOR
     Dosage: 25 MG, BID
     Dates: end: 20100613
  10. NITROGLYCERINE [Concomitant]
     Route: 060
  11. OMEPRAZOLE [Concomitant]
  12. HYDRALAZINE [Concomitant]
  13. GLICLAZIDE [Concomitant]
  14. ALLOPURINOL [Concomitant]

REACTIONS (7)
  - Torsade de pointes [Recovered/Resolved]
  - Drug interaction [Recovered/Resolved]
  - Atrial fibrillation [Unknown]
  - Ventricular tachycardia [Unknown]
  - Angina pectoris [Unknown]
  - Dyspnoea [Unknown]
  - Orthopnoea [Unknown]
